FAERS Safety Report 6476641-7 (Version None)
Quarter: 2009Q4

REPORT INFORMATION
  Report Type: 
  Country: None (occurrence: None)
  Receive Date: 20091202
  Receipt Date: 20091118
  Transmission Date: 20100525
  Serious: Yes (Death)
  Sender: FDA-Public Use
  Company Number: 1000007281

PATIENT
  Age: 42 Year
  Sex: Male

DRUGS (3)
  1. CELEXA [Suspect]
     Dosage: 20 MG (20 MG,1 IN 1 D),ORAL
     Route: 048
  2. CLOZARIL [Suspect]
     Indication: SCHIZOPHRENIA, PARANOID TYPE
     Dosage: 500 MG (20 MG,1 IN 1 D)
     Dates: start: 20020101, end: 20080101
  3. CLOZARIL [Suspect]
     Indication: SCHIZOPHRENIA, PARANOID TYPE
     Dosage: (50 MG,AS REQUIRED)

REACTIONS (6)
  - AORTIC VALVE DISEASE MIXED [None]
  - CARDIAC ARREST [None]
  - MYOCARDIAL INFARCTION [None]
  - PNEUMONIA [None]
  - REFUSAL OF TREATMENT BY PATIENT [None]
  - SYNCOPE [None]
